FAERS Safety Report 11294564 (Version 1)
Quarter: 2015Q2

REPORT INFORMATION
  Report Type: Spontaneous
  Country: US (occurrence: None)
  Receive Date: 20150623
  Receipt Date: 20150623
  Transmission Date: 20150821
  Serious: Yes (Other)
  Sender: FDA-Public Use
  Company Number: RB-72667-2015

PATIENT
  Age: 23 Year
  Sex: Male

DRUGS (1)
  1. MUCINEX DM [Suspect]
     Active Substance: DEXTROMETHORPHAN HYDROBROMIDE\GUAIFENESIN
     Indication: DRUG ABUSE
     Dosage: (6000 MG 1X, TOOK 10 TABLETS, ONE TIME DOSE ORAL)
     Route: 048

REACTIONS (10)
  - Intentional overdose [None]
  - Drug abuse [None]
  - Blood creatinine increased [None]
  - Hypertension [None]
  - Haematuria [None]
  - Dysuria [None]
  - Ureteric obstruction [None]
  - Oedema [None]
  - Hydronephrosis [None]
  - Flank pain [None]
